FAERS Safety Report 6743580-3 (Version None)
Quarter: 2010Q2

REPORT INFORMATION
  Report Type: 
  Country: None (occurrence: None)
  Receive Date: 20100527
  Receipt Date: 20100510
  Transmission Date: 20101027
  Serious: Yes (Hospitalization)
  Sender: FDA-Public Use
  Company Number: IT-WYE-H15366710

PATIENT
  Age: 74 Year
  Sex: Male

DRUGS (12)
  1. AMIODARONE HYDROCHLORIDE [Suspect]
     Route: 048
  2. SIMVASTATIN [Concomitant]
     Route: 048
  3. RAMIPRIL [Concomitant]
     Route: 048
  4. METFORMIN HYDROCHLORIDE [Concomitant]
     Route: 048
  5. COLCHICINE [Interacting]
     Indication: GOUTY ARTHRITIS
     Dosage: 1 MG ONCE
     Route: 048
  6. COLCHICINE [Interacting]
     Dosage: 1 MG ONCE
     Route: 048
  7. FUROSEMIDE [Concomitant]
     Route: 048
  8. WARFARIN SODIUM [Concomitant]
     Route: 048
  9. DICLOFENAC SODIUM [Suspect]
     Indication: GOUTY ARTHRITIS
     Dosage: 100 MG ONCE
  10. PREDNISONE TAB [Suspect]
     Indication: GOUTY ARTHRITIS
     Route: 048
  11. CARVEDILOL [Concomitant]
     Route: 048
  12. OMEPRAZOLE [Concomitant]
     Route: 048

REACTIONS (3)
  - DRUG INTERACTION [None]
  - LARGE INTESTINE PERFORATION [None]
  - RENAL FAILURE ACUTE [None]
